FAERS Safety Report 14708493 (Version 2)
Quarter: 2018Q2

REPORT INFORMATION
  Report Type: Spontaneous
  Country: JP (occurrence: JP)
  Receive Date: 20180403
  Receipt Date: 20180503
  Transmission Date: 20180711
  Serious: Yes (Hospitalization)
  Sender: FDA-Public Use
  Company Number: JP-ASTRAZENECA-2018SE41130

PATIENT
  Age: 28445 Day
  Sex: Male
  Weight: 44 kg

DRUGS (16)
  1. SAMSCA [Concomitant]
     Active Substance: TOLVAPTAN
     Dosage: 15 MG NUMBER OF SEPARATE DOSAGES UNKNOWN
     Route: 048
  2. MEMANTINE HYDROCHLORIDE. [Concomitant]
     Active Substance: MEMANTINE HYDROCHLORIDE
     Indication: DEMENTIA
     Route: 048
  3. ELIQUIS [Concomitant]
     Active Substance: APIXABAN
     Route: 048
  4. NEXIUM [Suspect]
     Active Substance: ESOMEPRAZOLE MAGNESIUM
     Route: 048
  5. DIART [Concomitant]
     Active Substance: AZOSEMIDE
     Dosage: 120 MG NUMBER OF SEPARATE DOSAGES UNKNOWN
     Route: 048
  6. BAYASPIRIN [Concomitant]
     Active Substance: ASPIRIN
     Route: 048
  7. FUROSEMIDE. [Concomitant]
     Active Substance: FUROSEMIDE
     Route: 048
  8. PIMOBENDAN [Concomitant]
     Active Substance: PIMOBENDAN
     Route: 048
  9. CRESTOR [Concomitant]
     Active Substance: ROSUVASTATIN CALCIUM
     Indication: DYSLIPIDAEMIA
     Route: 048
  10. BISOPROLOL FUMARATE. [Concomitant]
     Active Substance: BISOPROLOL FUMARATE
     Route: 048
  11. FEBURIC [Concomitant]
     Active Substance: FEBUXOSTAT
     Route: 048
  12. DIGOXIN. [Concomitant]
     Active Substance: DIGOXIN
     Dosage: 0.25 DF NUMBER OF SEPARATE DOSAGES UNKNOWN
     Route: 048
  13. SPIRONOLACTONE. [Concomitant]
     Active Substance: SPIRONOLACTONE
     Route: 048
  14. BELSOMRA [Concomitant]
     Active Substance: SUVOREXANT
     Route: 048
  15. LISINOPRIL DIHYDRATE [Concomitant]
     Active Substance: LISINOPRIL
     Route: 048
  16. AMITIZA [Concomitant]
     Active Substance: LUBIPROSTONE
     Route: 048

REACTIONS (1)
  - Cardiac failure chronic [Recovering/Resolving]

NARRATIVE: CASE EVENT DATE: 20170828
